FAERS Safety Report 18446083 (Version 2)
Quarter: 2020Q4

REPORT INFORMATION
  Report Type: Report from Study
  Country: BR (occurrence: BR)
  Receive Date: 20201030
  Receipt Date: 20201230
  Transmission Date: 20210114
  Serious: Yes (Other)
  Sender: FDA-Public Use
  Company Number: BR-UCBSA-2020042129

PATIENT
  Sex: Female
  Weight: 61 kg

DRUGS (3)
  1. PERIOGARD [Concomitant]
     Active Substance: CHLORHEXIDINE GLUCONATE
     Indication: INFLAMMATION
     Dosage: UNK
     Route: 061
  2. CERTOLIZUMAB PEGOL CD [Suspect]
     Active Substance: CERTOLIZUMAB PEGOL
     Indication: CROHN^S DISEASE
     Dosage: 200 MILLIGRAM, EV 15 DAYS
     Route: 058
     Dates: start: 2019
  3. PROFENID [Suspect]
     Active Substance: KETOPROFEN
     Indication: INFLAMMATION
     Dosage: UNK
     Route: 048

REACTIONS (6)
  - Pruritus [Recovered/Resolved]
  - Abdominal pain upper [Recovering/Resolving]
  - Palpitations [Recovering/Resolving]
  - Gingival swelling [Recovering/Resolving]
  - Erythema [Recovered/Resolved]
  - Gingival bleeding [Recovering/Resolving]

NARRATIVE: CASE EVENT DATE: 2020
